FAERS Safety Report 8296022-3 (Version None)
Quarter: 2012Q2

REPORT INFORMATION
  Report Type: 
  Country: None (occurrence: None)
  Receive Date: 20120418
  Receipt Date: 20120412
  Transmission Date: 20120825
  Serious: Yes (Hospitalization)
  Sender: FDA-Public Use
  Company Number: US-GLAXOSMITHKLINE-A0794425A

PATIENT
  Age: 76 Year
  Sex: Male
  Weight: 76.8 kg

DRUGS (6)
  1. ATENOLOL [Concomitant]
  2. TRICOR [Concomitant]
  3. CELEXA [Concomitant]
  4. SIMVASTATIN [Concomitant]
  5. AVANDIA [Suspect]
     Indication: TYPE 2 DIABETES MELLITUS
     Dosage: 8MG PER DAY
     Route: 048
     Dates: start: 20050329, end: 20070301
  6. DIOVAN [Concomitant]

REACTIONS (3)
  - CARDIOMYOPATHY [None]
  - CARDIAC FAILURE CONGESTIVE [None]
  - CARDIAC DISORDER [None]
